FAERS Safety Report 23804509 (Version 1)
Quarter: 2024Q2

REPORT INFORMATION
  Report Type: Spontaneous
  Country: US (occurrence: None)
  Receive Date: 20240501
  Receipt Date: 20240501
  Transmission Date: 20240716
  Serious: No
  Sender: FDA-Public Use
  Company Number: None

PATIENT
  Age: 74 Year
  Weight: 89.8 kg

DRUGS (1)
  1. EMPAGLIFLOZIN [Suspect]
     Active Substance: EMPAGLIFLOZIN
     Dosage: FREQUENCY : DAILY;?
     Route: 048
     Dates: start: 20221114, end: 20230105

REACTIONS (6)
  - Urinary tract infection [None]
  - Nephrolithiasis [None]
  - Hydronephrosis [None]
  - Hydroureter [None]
  - Acute kidney injury [None]
  - Leukocytosis [None]

NARRATIVE: CASE EVENT DATE: 20221228
